FAERS Safety Report 23499815 (Version 1)
Quarter: 2024Q1

REPORT INFORMATION
  Report Type: Spontaneous
  Country: VN (occurrence: VN)
  Receive Date: 20240208
  Receipt Date: 20240208
  Transmission Date: 20240410
  Serious: Yes (Hospitalization)
  Sender: FDA-Public Use
  Company Number: VN-STRIDES ARCOLAB LIMITED-2024SP001295

PATIENT
  Age: 8 Decade
  Sex: Female

DRUGS (1)
  1. COLCHICINE [Suspect]
     Active Substance: COLCHICINE
     Indication: Gouty arthritis
     Dosage: 1 MILLIGRAM PER DAY
     Route: 065

REACTIONS (3)
  - Renal impairment [Recovered/Resolved]
  - Diarrhoea [Unknown]
  - Myopathy [Recovered/Resolved]
